FAERS Safety Report 21816142 (Version 10)
Quarter: 2025Q4

REPORT INFORMATION
  Report Type: Spontaneous
  Country: CA (occurrence: CA)
  Receive Date: 20230104
  Receipt Date: 20251218
  Transmission Date: 20260118
  Serious: Yes (Hospitalization, Other)
  Sender: AUROBINDO
  Company Number: CA-AUROBINDO-AUR-APL-2022-056958

PATIENT
  Age: 9 Year
  Sex: Male

DRUGS (50)
  1. ARIPIPRAZOLE [Interacting]
     Active Substance: ARIPIPRAZOLE
     Indication: Behaviour disorder
     Dosage: UNK
     Route: 065
  2. ARIPIPRAZOLE [Interacting]
     Active Substance: ARIPIPRAZOLE
     Indication: Anxiety
  3. ARIPIPRAZOLE [Interacting]
     Active Substance: ARIPIPRAZOLE
     Indication: Abnormal behaviour
  4. CIPROFLOXACIN [Suspect]
     Active Substance: CIPROFLOXACIN
     Indication: Mycobacterium fortuitum infection
     Dosage: UNK
     Route: 061
  5. LINEZOLID [Interacting]
     Active Substance: LINEZOLID
     Indication: Peritonitis
     Dosage: UNK
     Route: 061
  6. LINEZOLID [Interacting]
     Active Substance: LINEZOLID
     Indication: Mycobacterium fortuitum infection
  7. LINEZOLID [Interacting]
     Active Substance: LINEZOLID
     Indication: Device related infection
  8. MOXIFLOXACIN [Interacting]
     Active Substance: MOXIFLOXACIN
     Indication: Mycobacterium fortuitum infection
     Dosage: UNK
     Route: 061
  9. MOXIFLOXACIN [Interacting]
     Active Substance: MOXIFLOXACIN
     Indication: Evidence based treatment
  10. SERTRALINE [Interacting]
     Active Substance: SERTRALINE HYDROCHLORIDE
     Indication: Anxiety
     Dosage: UNK
     Route: 065
  11. SERTRALINE [Interacting]
     Active Substance: SERTRALINE HYDROCHLORIDE
     Indication: Behaviour disorder
  12. SERTRALINE [Interacting]
     Active Substance: SERTRALINE HYDROCHLORIDE
     Indication: Behaviour disorder
     Dosage: UNK
     Route: 065
  13. SERTRALINE [Interacting]
     Active Substance: SERTRALINE HYDROCHLORIDE
     Indication: Anxiety
  14. TACROLIMUS [Interacting]
     Active Substance: TACROLIMUS
     Indication: Immunosuppressant drug therapy
     Dosage: UNK (LOW DOSE)
     Route: 065
  15. TACROLIMUS [Interacting]
     Active Substance: TACROLIMUS
     Indication: Prophylaxis against transplant rejection
  16. METHYLPHENIDATE [Suspect]
     Active Substance: METHYLPHENIDATE
     Indication: Anxiety
     Dosage: UNK
     Route: 065
  17. METHYLPHENIDATE [Suspect]
     Active Substance: METHYLPHENIDATE
     Indication: Behaviour disorder
  18. PREDNISONE [Suspect]
     Active Substance: PREDNISONE
     Indication: Immunosuppressant drug therapy
     Dosage: UNK
     Route: 065
  19. PREDNISONE [Suspect]
     Active Substance: PREDNISONE
     Indication: Prophylaxis against transplant rejection
  20. CLOFAZIMINE [Suspect]
     Active Substance: CLOFAZIMINE
     Indication: Peritonitis
     Dosage: 50 MILLIGRAM, ONCE A DAY
     Route: 061
  21. CLOFAZIMINE [Suspect]
     Active Substance: CLOFAZIMINE
     Indication: Mycobacterium fortuitum infection
     Dosage: UNK
     Route: 065
  22. CLOFAZIMINE [Suspect]
     Active Substance: CLOFAZIMINE
     Indication: Device related infection
  23. THYMOCYTE IMMUNE GLOBULIN NOS [Suspect]
     Active Substance: THYMOCYTE IMMUNE GLOBULIN NOS
     Indication: Prophylaxis against transplant rejection
     Dosage: UNK
     Route: 065
  24. AMIKACIN [Concomitant]
     Active Substance: AMIKACIN
     Indication: Peritonitis
     Dosage: UNK
  25. AMIKACIN [Concomitant]
     Active Substance: AMIKACIN
     Indication: Evidence based treatment
     Dosage: UNK, LIQUID
  26. AMIKACIN [Concomitant]
     Active Substance: AMIKACIN
     Indication: Anti-infective therapy
  27. FLUCONAZOLE [Concomitant]
     Active Substance: FLUCONAZOLE
     Indication: Antifungal prophylaxis
     Dosage: UNK
     Route: 061
  28. CEFAZOLIN [Concomitant]
     Active Substance: CEFAZOLIN
     Indication: Peritonitis
     Dosage: UNK
  29. CEFAZOLIN [Concomitant]
     Active Substance: CEFAZOLIN
     Indication: Evidence based treatment
  30. CEFTAZIDIME [Concomitant]
     Active Substance: CEFTAZIDIME
     Indication: Peritonitis
     Dosage: UNK
  31. CEFTAZIDIME [Concomitant]
     Active Substance: CEFTAZIDIME
     Indication: Anti-infective therapy
     Dosage: UNK
     Route: 065
  32. CEFTAZIDIME [Concomitant]
     Active Substance: CEFTAZIDIME
     Indication: Evidence based treatment
  33. IMIPENEM [Concomitant]
     Active Substance: IMIPENEM
     Indication: Peritonitis
     Dosage: UNK
  34. IMIPENEM [Concomitant]
     Active Substance: IMIPENEM
     Indication: Evidence based treatment
  35. SULFAMETHOXAZOLE\TRIMETHOPRIM [Concomitant]
     Active Substance: SULFAMETHOXAZOLE\TRIMETHOPRIM
     Indication: Peritonitis
     Dosage: UNK
     Route: 061
  36. SULFAMETHOXAZOLE\TRIMETHOPRIM [Concomitant]
     Active Substance: SULFAMETHOXAZOLE\TRIMETHOPRIM
     Indication: Mycobacterium fortuitum infection
  37. SULFAMETHOXAZOLE\TRIMETHOPRIM [Concomitant]
     Active Substance: SULFAMETHOXAZOLE\TRIMETHOPRIM
     Indication: Evidence based treatment
  38. VANCOMYCIN [Concomitant]
     Active Substance: VANCOMYCIN
     Indication: Bacterial infection
     Dosage: UNK
  39. VANCOMYCIN [Concomitant]
     Active Substance: VANCOMYCIN
     Indication: Evidence based treatment
  40. IMIPENEM [Concomitant]
     Active Substance: IMIPENEM
     Indication: Product used for unknown indication
     Dosage: UNK
  41. CIPROFLOXACIN [Concomitant]
     Active Substance: CIPROFLOXACIN
     Indication: Anti-infective therapy
     Dosage: UNK
     Route: 061
  42. CIPROFLOXACIN [Concomitant]
     Active Substance: CIPROFLOXACIN
     Indication: Mycobacterium fortuitum infection
  43. CIPROFLOXACIN [Concomitant]
     Active Substance: CIPROFLOXACIN
     Indication: Peritonitis bacterial
  44. CIPROFLOXACIN [Concomitant]
     Active Substance: CIPROFLOXACIN
     Indication: Device related infection
  45. CLARITHROMYCIN [Concomitant]
     Active Substance: CLARITHROMYCIN
     Indication: Product used for unknown indication
     Dosage: UNK
     Route: 065
  46. DOXYCYCLINE [Concomitant]
     Active Substance: DOXYCYCLINE
     Indication: Product used for unknown indication
     Dosage: UNK
     Route: 065
  47. ARIPIPRAZOLE [Concomitant]
     Active Substance: ARIPIPRAZOLE
     Indication: Behaviour disorder
     Dosage: UNK
     Route: 065
  48. ARIPIPRAZOLE [Concomitant]
     Active Substance: ARIPIPRAZOLE
     Indication: Anxiety
  49. CILASTATIN [Concomitant]
     Active Substance: CILASTATIN
     Indication: Evidence based treatment
     Dosage: UNK
  50. THYMOCYTE IMMUNE GLOBULIN NOS [Concomitant]
     Active Substance: THYMOCYTE IMMUNE GLOBULIN NOS
     Indication: Prophylaxis against transplant rejection
     Dosage: UNK
     Route: 065

REACTIONS (10)
  - Electrocardiogram QT prolonged [Recovered/Resolved]
  - Mycobacterial peritonitis [Recovered/Resolved]
  - Mycobacterium fortuitum infection [Recovered/Resolved]
  - Decreased appetite [Recovered/Resolved]
  - Lymphopenia [Recovered/Resolved]
  - Nausea [Recovered/Resolved]
  - Peritonitis bacterial [Recovered/Resolved]
  - Drug interaction [Recovered/Resolved]
  - Off label use [Recovered/Resolved]
  - Device related infection [Recovered/Resolved]
